FAERS Safety Report 7266591-0 (Version None)
Quarter: 2011Q1

REPORT INFORMATION
  Report Type: 
  Country: None (occurrence: None)
  Receive Date: 20110131
  Receipt Date: 20110120
  Transmission Date: 20110831
  Serious: Yes (Other)
  Sender: FDA-Public Use
  Company Number: US-MERCK-1012USA03373

PATIENT

DRUGS (1)
  1. DECADRON [Suspect]
     Indication: ATRIOVENTRICULAR BLOCK
     Route: 064

REACTIONS (2)
  - FOETAL DISORDER [None]
  - DRUG EXPOSURE DURING PREGNANCY [None]
